FAERS Safety Report 7055924-6 (Version None)
Quarter: 2010Q4

REPORT INFORMATION
  Report Type: 
  Country: None (occurrence: None)
  Receive Date: 20101021
  Receipt Date: 20101015
  Transmission Date: 20110411
  Serious: Yes (Hospitalization)
  Sender: FDA-Public Use
  Company Number: A0764400A

PATIENT
  Age: 74 Year
  Sex: Male
  Weight: 105.9 kg

DRUGS (8)
  1. AVANDIA [Suspect]
     Dosage: 4MG PER DAY
     Route: 048
     Dates: start: 20050511
  2. AVANDAMET [Suspect]
     Dosage: 4MG PER DAY
     Route: 048
     Dates: start: 20040903, end: 20070501
  3. PLAVIX [Concomitant]
  4. LASIX [Concomitant]
  5. AVODART [Concomitant]
  6. ZETIA [Concomitant]
  7. ZOCOR [Concomitant]
  8. ALTACE [Concomitant]

REACTIONS (6)
  - ANGINA PECTORIS [None]
  - ARTERIOSCLEROSIS CORONARY ARTERY [None]
  - CARDIAC FAILURE CONGESTIVE [None]
  - CEREBROVASCULAR ACCIDENT [None]
  - CEREBROVASCULAR DISORDER [None]
  - MYOCARDIAL INFARCTION [None]
